FAERS Safety Report 5205725-6 (Version None)
Quarter: 2007Q1

REPORT INFORMATION
  Report Type: 
  Country: None (occurrence: None)
  Receive Date: 20070105
  Receipt Date: 20070105
  Transmission Date: 20070707
  Serious: Yes (Life-Threatening, Hospitalization)
  Sender: FDA-Public Use
  Company Number: None

PATIENT
  Sex: Male
  Weight: 75.2971 kg

DRUGS (15)
  1. COUMADIN [Suspect]
     Indication: DEEP VEIN THROMBOSIS
     Dosage: 5 MG QPM PO
     Route: 048
  2. LOVENOX [Suspect]
     Indication: DEEP VEIN THROMBOSIS
     Dosage: 80MG/0.8ML Q12H SC
     Route: 058
  3. ASPIRIN [Concomitant]
  4. RANITIDINE [Concomitant]
  5. UREA [Concomitant]
  6. HYDROCHLOROTHIAZIDE [Concomitant]
  7. GLYBURIDE [Concomitant]
  8. LISINOPRIL [Concomitant]
  9. CITALOPRAM HYDROBROMIDE [Concomitant]
  10. QUETIAPINE FUMARATE [Concomitant]
  11. ROSIGILITAZONE [Concomitant]
  12. SIMVASTATIN [Concomitant]
  13. ATENOLOL [Concomitant]
  14. PRECISION EXTRA TEST STRIP [Concomitant]
  15. MEDISENSE LANCET [Concomitant]

REACTIONS (5)
  - DIVERTICULUM INTESTINAL [None]
  - HYPOTENSION [None]
  - ILL-DEFINED DISORDER [None]
  - LOWER GASTROINTESTINAL HAEMORRHAGE [None]
  - RECTAL POLYP [None]
